FAERS Safety Report 8383527-X (Version None)
Quarter: 2012Q2

REPORT INFORMATION
  Report Type: 
  Country: None (occurrence: None)
  Receive Date: 20120524
  Receipt Date: 20120509
  Transmission Date: 20120825
  Serious: Yes (Hospitalization)
  Sender: FDA-Public Use
  Company Number: JP-SANOFI-AVENTIS-2012SA033686

PATIENT
  Age: 47 Year
  Sex: Female

DRUGS (5)
  1. HEPARIN SODIUM [Suspect]
     Indication: ANTICOAGULANT THERAPY
     Route: 065
     Dates: start: 20091201
  2. CLOPIDOGREL BISULFATE [Suspect]
     Route: 048
     Dates: start: 20100101, end: 20100201
  3. NAFAMOSTAT [Concomitant]
     Indication: ANTICOAGULANT THERAPY
  4. HEPARIN SODIUM [Suspect]
     Dosage: PRETREATMENT
     Route: 065
     Dates: start: 20100101, end: 20100106
  5. HEPARIN SODIUM [Suspect]
     Dosage: PRETREATMENT DOSE:7000 UNIT(S)
     Route: 065
     Dates: start: 20100101

REACTIONS (13)
  - PURPURA [None]
  - OXYGEN SATURATION DECREASED [None]
  - HEPARIN-INDUCED THROMBOCYTOPENIA [None]
  - ANTIBODY TEST POSITIVE [None]
  - ELECTROCARDIOGRAM ST SEGMENT ELEVATION [None]
  - ELECTROCARDIOGRAM ABNORMAL [None]
  - THROMBOSIS IN DEVICE [None]
  - PLATELET COUNT DECREASED [None]
  - OEDEMA PERIPHERAL [None]
  - HEART RATE INCREASED [None]
  - CHEST PAIN [None]
  - NAUSEA [None]
  - ACUTE MYOCARDIAL INFARCTION [None]
